FAERS Safety Report 9649010 (Version 2)
Quarter: 2014Q1

REPORT INFORMATION
  Report Type: Spontaneous
  Country: US (occurrence: None)
  Receive Date: 20131018
  Receipt Date: 20140122
  Transmission Date: 20141002
  Serious: Yes (Other)
  Sender: FDA-Public Use
  Company Number: AEGR000119

PATIENT
  Age: 42 Year
  Sex: Female
  Weight: 45.4 kg

DRUGS (12)
  1. JUXTAPID [Suspect]
     Indication: TYPE IIA HYPERLIPIDAEMIA
     Route: 048
     Dates: start: 20130720, end: 20130810
  2. JUXTAPID [Suspect]
     Indication: ARTHRITIS
     Route: 048
     Dates: start: 20130720, end: 20130810
  3. JUXTAPID [Suspect]
     Indication: FATIGUE
     Route: 048
     Dates: start: 20130720, end: 20130810
  4. HUMIRA(ADALIMUMAB) [Concomitant]
  5. METHOTREXATE(METHOTREXATE SODIUM) [Concomitant]
  6. MOBIC (MELOXICAM) [Concomitant]
  7. NEURONTIN(GABAPENTIN) [Concomitant]
  8. KLONOPIN(CLONAZEPAM) [Concomitant]
  9. SOMA(CARISOPRODOL) [Concomitant]
  10. CRESTOR(ROSUVASTATIN CALCIUM) [Concomitant]
  11. PROTONIX(PANTOPRAZOLE SODIUM SESQUIHYDRATE) [Concomitant]
  12. ONE-A-DAY(ASCORBIC ACID, CYANOCOBALAMIN,ERGOCALCIFEROL,NICOTINAMIDE,PHYRIDOXINE HYDROCHLORIDE, RETINOL, RIBOFLAVIN,THIAMINE MONONITRATE) [Concomitant]

REACTIONS (8)
  - Nausea [None]
  - Abdominal pain [None]
  - Abdominal distension [None]
  - Diarrhoea [None]
  - Acne [None]
  - Pain in extremity [None]
  - Arthritis [None]
  - Fatigue [None]
